FAERS Safety Report 7405365 (Version 4)
Quarter: 2013Q4

REPORT INFORMATION
  Report Type: Spontaneous
  Country: US (occurrence: US)
  Receive Date: 20100601
  Receipt Date: 20131115
  Transmission Date: 20140711
  Serious: Yes (Hospitalization, Other)
  Sender: FDA-Public Use
  Company Number: US-BAYER-201023682NA

PATIENT
  Age: 21 Year
  Sex: Female
  Weight: 116 kg

DRUGS (11)
  1. YASMIN [Suspect]
     Indication: ORAL CONTRACEPTION
     Dosage: UNK UNK, QD
     Route: 048
     Dates: start: 200710, end: 200807
  2. OCELLA [Suspect]
     Indication: ORAL CONTRACEPTION
     Dosage: UNK UNK, QD
     Route: 048
     Dates: start: 200807, end: 201001
  3. YAZ [Suspect]
  4. PHENTERMINE [Concomitant]
     Indication: DECREASED APPETITE
     Dosage: UNK
     Dates: start: 200706, end: 200710
  5. ALBUTEROL [Concomitant]
     Dosage: UNK UNK, PRN
  6. BENADRYL [Concomitant]
     Indication: MULTIPLE ALLERGIES
     Dosage: UNK UNK, PRN
  7. AMOXIL [Concomitant]
     Dosage: UNK
     Dates: start: 2007
  8. CIPRODEX [Concomitant]
     Dosage: UNK
     Dates: start: 200711
  9. ENDOCET [Concomitant]
     Dosage: 5-325 MG
  10. PANTOPRAZOLE [Concomitant]
     Dosage: 40 MG, UNK
  11. LEVAQUIN [Concomitant]
     Dosage: 500 MG, UNK

REACTIONS (19)
  - Cholecystitis [None]
  - Bile duct stone [Recovered/Resolved]
  - Cholelithiasis [Unknown]
  - Gastritis [None]
  - Pancreatitis [Recovering/Resolving]
  - Abdominal pain [Recovered/Resolved]
  - Dyspnoea [Recovered/Resolved]
  - Nausea [None]
  - Cholelithiasis [None]
  - Abdominal pain upper [None]
  - Gastroenteritis [None]
  - Abdominal distension [None]
  - Vomiting [Recovering/Resolving]
  - Amylase increased [Recovering/Resolving]
  - Lipase increased [Recovering/Resolving]
  - Injury [Unknown]
  - Pain [Unknown]
  - Asthenia [Unknown]
  - Dyspnoea [None]
